FAERS Safety Report 16298656 (Version 1)
Quarter: 2019Q2

REPORT INFORMATION
  Report Type: Spontaneous
  Country: PT (occurrence: PT)
  Receive Date: 20190510
  Receipt Date: 20190510
  Transmission Date: 20190711
  Serious: Yes (Other)
  Sender: FDA-Public Use
  Company Number: PT-AUROBINDO-AUR-APL-2019-024739

PATIENT

DRUGS (1)
  1. AMOXICILLIN+CLAVULANIC ACID [Suspect]
     Active Substance: AMOXICILLIN\CLAVULANIC ACID
     Indication: ASTHMA
     Dosage: UNK
     Route: 065

REACTIONS (8)
  - Lung hyperinflation [Unknown]
  - Obliterative bronchiolitis [Unknown]
  - MacLeod^s syndrome [Unknown]
  - Hypercapnia [Unknown]
  - Pulmonary artery occlusion [Unknown]
  - Product use in unapproved indication [Unknown]
  - Bronchiectasis [Unknown]
  - Hypoxia [Unknown]
